FAERS Safety Report 12633144 (Version 2)
Quarter: 2016Q3

REPORT INFORMATION
  Report Type: Spontaneous
  Country: US (occurrence: US)
  Receive Date: 20160808
  Receipt Date: 20160808
  Transmission Date: 20161109
  Serious: No
  Sender: FDA-Public Use
  Company Number: US-BEH-2016058602

PATIENT
  Age: 60 Year
  Sex: Female
  Weight: 77 kg

DRUGS (13)
  1. HIZENTRA [Suspect]
     Active Substance: HUMAN IMMUNOGLOBULIN G
     Indication: HYPOGAMMAGLOBULINAEMIA
     Route: 058
     Dates: start: 20140328
  2. CEPHALEXIN. [Concomitant]
     Active Substance: CEPHALEXIN
  3. FENOFIBRATE. [Concomitant]
     Active Substance: FENOFIBRATE
  4. ATENOLOL. [Concomitant]
     Active Substance: ATENOLOL
  5. EPI-PEN AUTOINJECTOR [Concomitant]
  6. ASPIRIN. [Concomitant]
     Active Substance: ASPIRIN
  7. NITROSTAT [Concomitant]
     Active Substance: NITROGLYCERIN
     Dosage: SL
  8. LOSARTAN POTASSIUM. [Concomitant]
     Active Substance: LOSARTAN POTASSIUM
  9. EQL FOLIC ACID [Concomitant]
  10. XANAX [Concomitant]
     Active Substance: ALPRAZOLAM
  11. FLUOXETINE HCL [Concomitant]
     Active Substance: FLUOXETINE HYDROCHLORIDE
  12. NEURONTIN [Concomitant]
     Active Substance: GABAPENTIN
  13. CVS VITAMIN E [Concomitant]

REACTIONS (1)
  - Sinusitis [Unknown]

NARRATIVE: CASE EVENT DATE: 20151118
